FAERS Safety Report 21221946 (Version 2)
Quarter: 2022Q3

REPORT INFORMATION
  Report Type: Spontaneous
  Country: US (occurrence: US)
  Receive Date: 20220817
  Receipt Date: 20220826
  Transmission Date: 20221027
  Serious: No
  Sender: FDA-Public Use
  Company Number: US-NOVARTISTESTPH-NVSC2022US185787

PATIENT
  Age: 67 Year
  Sex: Female

DRUGS (1)
  1. MEKINIST [Suspect]
     Active Substance: TRAMETINIB DIMETHYL SULFOXIDE
     Indication: Product used for unknown indication
     Dosage: 5 MG, QD
     Route: 048
     Dates: start: 20220801, end: 20220807

REACTIONS (6)
  - Retching [Unknown]
  - Nasopharyngitis [Unknown]
  - Dehydration [Unknown]
  - Pyrexia [Unknown]
  - Chills [Unknown]
  - Nausea [Unknown]

NARRATIVE: CASE EVENT DATE: 20220801
